FAERS Safety Report 8377712-0 (Version None)
Quarter: 2012Q2

REPORT INFORMATION
  Report Type: 
  Country: None (occurrence: None)
  Receive Date: 20120522
  Receipt Date: 20120515
  Transmission Date: 20120825
  Serious: Yes (Hospitalization)
  Sender: FDA-Public Use
  Company Number: FR-GLAXOSMITHKLINE-B0521251A

PATIENT
  Sex: Female

DRUGS (4)
  1. VERAPAMIL [Concomitant]
     Indication: PRODUCT USED FOR UNKNOWN INDICATION
     Route: 065
  2. CLARITHROMYCIN [Suspect]
     Indication: BRONCHOPNEUMOPATHY
     Dosage: 500MG TWICE PER DAY
     Route: 048
     Dates: start: 20080307, end: 20080309
  3. AUGMENTIN '125' [Suspect]
     Indication: BRONCHOPNEUMOPATHY
     Dosage: 1G THREE TIMES PER DAY
     Route: 048
     Dates: start: 20080305, end: 20080321
  4. COUMADIN [Suspect]
     Indication: THROMBOPHLEBITIS
     Dosage: 7MG PER DAY
     Route: 048
     Dates: start: 20070601, end: 20080309

REACTIONS (5)
  - INTERNATIONAL NORMALISED RATIO INCREASED [None]
  - PROTHROMBIN TIME RATIO DECREASED [None]
  - HAEMATURIA [None]
  - HAEMATOCHEZIA [None]
  - DRUG INTERACTION [None]
